FAERS Safety Report 14616708 (Version 1)
Quarter: 2018Q1

REPORT INFORMATION
  Report Type: Spontaneous
  Country: US (occurrence: US)
  Receive Date: 20180308
  Receipt Date: 20180308
  Transmission Date: 20180509
  Serious: No
  Sender: FDA-Public Use
  Company Number: None

PATIENT
  Age: 43 Year
  Sex: Female
  Weight: 54 kg

DRUGS (1)
  1. ADVAIR DISKUS [Suspect]
     Active Substance: FLUTICASONE PROPIONATE\SALMETEROL XINAFOATE
     Indication: ASTHMA
     Dosage: ?          OTHER STRENGTH:MCG250 50MCG;QUANTITY:1 60;?
     Route: 055

REACTIONS (4)
  - Product storage error [None]
  - Product distribution issue [None]
  - Drug ineffective [None]
  - Product outer packaging issue [None]

NARRATIVE: CASE EVENT DATE: 20180308
